FAERS Safety Report 11427283 (Version 1)
Quarter: 2015Q3

REPORT INFORMATION
  Report Type: Spontaneous
  Country: US (occurrence: US)
  Receive Date: 20150827
  Receipt Date: 20150827
  Transmission Date: 20151125
  Serious: No
  Sender: FDA-Public Use
  Company Number: US-SA-2014SA142983

PATIENT
  Age: 7 Year
  Sex: Female

DRUGS (1)
  1. FABRAZYME [Suspect]
     Active Substance: AGALSIDASE BETA
     Indication: LIPIDOSIS
     Route: 041
     Dates: start: 20141009

REACTIONS (2)
  - Urticaria [Recovering/Resolving]
  - Infusion site reaction [Recovering/Resolving]

NARRATIVE: CASE EVENT DATE: 20141009
